FAERS Safety Report 25079903 (Version 2)
Quarter: 2025Q4

REPORT INFORMATION
  Report Type: Spontaneous
  Country: EU (occurrence: EU)
  Receive Date: 20250314
  Receipt Date: 20251231
  Transmission Date: 20260117
  Serious: Yes (Hospitalization, Other)
  Sender: FERRING
  Company Number: EU-EMA-DD-20250225-7482707-054826

PATIENT

DRUGS (6)
  1. PROGESTERONE [Suspect]
     Active Substance: PROGESTERONE
     Indication: In vitro fertilisation
     Dosage: DOSE REDUCED
     Route: 067
  2. PROGESTERONE [Suspect]
     Active Substance: PROGESTERONE
     Dosage: HIGH DOSES OF PROGESTERONE INTRAVAGINALLY
     Route: 067
  3. PROGESTERONE [Suspect]
     Active Substance: PROGESTERONE
     Indication: In vitro fertilisation
     Dosage: DOSE REDUCED
     Route: 048
  4. PROGESTERONE [Suspect]
     Active Substance: PROGESTERONE
     Dosage: HIGH DOSES OF PROGESTERONE BOTH ORALLY
     Route: 048
  5. ESTRADIOL [Suspect]
     Active Substance: ESTRADIOL
     Indication: In vitro fertilisation
     Dosage: UNK
     Route: 048
  6. ESTRADIOL [Suspect]
     Active Substance: ESTRADIOL
     Indication: In vitro fertilisation
     Dosage: UNK
     Route: 067

REACTIONS (6)
  - Ventricular arrhythmia [Recovering/Resolving]
  - Dilatation atrial [Recovering/Resolving]
  - Mitral valve incompetence [Recovering/Resolving]
  - Tricuspid valve incompetence [Recovering/Resolving]
  - Cardiac aneurysm [Recovering/Resolving]
  - Pulmonary hypertension [Recovering/Resolving]
